FAERS Safety Report 19282080 (Version 2)
Quarter: 2021Q2

REPORT INFORMATION
  Report Type: Spontaneous
  Country: US (occurrence: US)
  Receive Date: 20210521
  Receipt Date: 20210524
  Transmission Date: 20210717
  Serious: No
  Sender: FDA-Public Use
  Company Number: US-ORGANON-O2105USA001125

PATIENT
  Age: 39 Year
  Sex: Female
  Weight: 83.45 kg

DRUGS (1)
  1. NEXPLANON [Suspect]
     Active Substance: ETONOGESTREL
     Indication: CONTRACEPTION
     Dosage: 68MG EVERY 3 YEARS
     Route: 059
     Dates: start: 20210504, end: 202105

REACTIONS (4)
  - Erythema [Recovering/Resolving]
  - Implant site swelling [Recovering/Resolving]
  - Implant site erythema [Recovering/Resolving]
  - Implant site infection [Recovering/Resolving]

NARRATIVE: CASE EVENT DATE: 20210511
